FAERS Safety Report 9483899 (Version 2)
Quarter: 2013Q3

REPORT INFORMATION
  Report Type: Spontaneous
  Country: CA (occurrence: CA)
  Receive Date: 20130828
  Receipt Date: 20130828
  Transmission Date: 20140515
  Serious: Yes (Hospitalization)
  Sender: FDA-Public Use
  Company Number: CA-AMGEN-KDL348936

PATIENT
  Age: 46 Year
  Sex: Male

DRUGS (2)
  1. ENBREL [Suspect]
     Indication: RHEUMATOID ARTHRITIS
     Dosage: UNK UNK, QWK
     Route: 065
     Dates: start: 20090518
  2. DIPHENHYDRAMINE HYDROCHLORIDE [Concomitant]
     Dosage: UNK UNK, UNK
     Dates: start: 20090525

REACTIONS (7)
  - Back pain [Unknown]
  - Rash erythematous [Unknown]
  - Fatigue [Unknown]
  - Lip swelling [Unknown]
  - Hypersensitivity [Unknown]
  - Sensation of heaviness [Unknown]
  - Dyspnoea [Unknown]
